FAERS Safety Report 19085992 (Version 1)
Quarter: 2021Q2

REPORT INFORMATION
  Report Type: Spontaneous
  Country: US (occurrence: US)
  Receive Date: 20210402
  Receipt Date: 20210402
  Transmission Date: 20210717
  Serious: Yes (Other)
  Sender: FDA-Public Use
  Company Number: US-CADILA HEALTHCARE LIMITED-US-ZYDUS-063726

PATIENT

DRUGS (5)
  1. BACLOFEN. [Suspect]
     Active Substance: BACLOFEN
     Indication: SEPTIC SHOCK
     Dosage: 40 MILLIGRAM, QID
     Route: 048
  2. PREGABALIN. [Concomitant]
     Active Substance: PREGABALIN
     Indication: PRODUCT USED FOR UNKNOWN INDICATION
     Dosage: 300 MILLIGRAM, TID
  3. TYLENOL [Concomitant]
     Active Substance: ACETAMINOPHEN
     Indication: PRODUCT USED FOR UNKNOWN INDICATION
     Dosage: UNK
  4. BACLOFEN. [Suspect]
     Active Substance: BACLOFEN
     Dosage: 20 MILLIGRAM, TID
     Route: 048
  5. AMITRIPTYLINE [Concomitant]
     Active Substance: AMITRIPTYLINE
     Indication: PRODUCT USED FOR UNKNOWN INDICATION
     Dosage: 100 MILLIGRAM, QD

REACTIONS (1)
  - Hyperthermia [Recovered/Resolved]
